FAERS Safety Report 6397573-9 (Version None)
Quarter: 2009Q4

REPORT INFORMATION
  Report Type: 
  Country: None (occurrence: None)
  Receive Date: 20091012
  Receipt Date: 20090910
  Transmission Date: 20100525
  Serious: Yes (Death, Other)
  Sender: FDA-Public Use
  Company Number: US-BAXTER-2008BH006794

PATIENT
  Age: 76 Year
  Sex: Male
  Weight: 97 kg

DRUGS (21)
  1. HEPARIN SODIUM INJECTION [Suspect]
     Indication: CORONARY ARTERY BYPASS
     Route: 042
     Dates: start: 20080123, end: 20080123
  2. HEPARIN SODIUM INJECTION [Suspect]
     Indication: ANTICOAGULANT THERAPY
     Route: 042
     Dates: start: 20080123, end: 20080123
  3. HEPARIN SODIUM INJECTION [Suspect]
     Route: 042
     Dates: start: 20080123, end: 20080123
  4. HEPARIN SODIUM INJECTION [Suspect]
     Indication: PROPHYLAXIS
     Route: 042
     Dates: start: 20080123, end: 20080123
  5. HEPARIN SODIUM INJECTION [Suspect]
     Route: 042
     Dates: start: 20080124, end: 20080124
  6. HEPARIN SODIUM INJECTION [Suspect]
     Route: 042
     Dates: start: 20080124, end: 20080124
  7. HEPARIN SODIUM INJECTION [Suspect]
     Route: 042
     Dates: start: 20080124, end: 20080124
  8. HEPARIN SODIUM INJECTION [Suspect]
     Route: 042
     Dates: start: 20080124, end: 20080124
  9. LISINOPRIL [Concomitant]
     Indication: BLOOD CHOLESTEROL
     Route: 065
  10. EZETIMIBE [Concomitant]
     Indication: BLOOD CHOLESTEROL
     Route: 065
  11. METOPROLOL SUCCINATE [Concomitant]
     Indication: DRUG USE FOR UNKNOWN INDICATION
     Route: 065
  12. RANOLAZINE [Concomitant]
     Indication: DRUG USE FOR UNKNOWN INDICATION
     Route: 065
  13. ASPIRIN [Concomitant]
     Indication: DRUG USE FOR UNKNOWN INDICATION
     Route: 065
  14. VITAMIN B COMPLEX CAP [Concomitant]
     Indication: DRUG USE FOR UNKNOWN INDICATION
     Route: 065
  15. FOLIC ACID [Concomitant]
     Indication: DRUG USE FOR UNKNOWN INDICATION
     Route: 065
  16. VITAMIN A [Concomitant]
     Indication: DRUG USE FOR UNKNOWN INDICATION
     Route: 065
  17. ZINC GLUCONATE [Concomitant]
     Indication: DRUG USE FOR UNKNOWN INDICATION
     Route: 065
  18. ASCORBIC ACID [Concomitant]
     Indication: DRUG USE FOR UNKNOWN INDICATION
     Route: 065
  19. COENZYME Q10 [Concomitant]
     Indication: DRUG USE FOR UNKNOWN INDICATION
     Route: 065
  20. LOVAZA [Concomitant]
     Indication: DRUG USE FOR UNKNOWN INDICATION
     Route: 065
  21. SIMVASTATIN [Concomitant]
     Indication: BLOOD CHOLESTEROL
     Route: 065

REACTIONS (17)
  - ARRHYTHMIA [None]
  - AUTOIMMUNE THYROIDITIS [None]
  - CARDIAC ARREST [None]
  - CARDIAC FAILURE [None]
  - CARDIOGENIC SHOCK [None]
  - COAGULOPATHY [None]
  - CORONARY ARTERY DISEASE [None]
  - ELECTROMECHANICAL DISSOCIATION [None]
  - EMBOLISM [None]
  - ENTEROCOCCAL INFECTION [None]
  - HYPOTENSION [None]
  - LOSS OF CONSCIOUSNESS [None]
  - ORGAN FAILURE [None]
  - OXYGEN SATURATION ABNORMAL [None]
  - PLEURAL EFFUSION [None]
  - SEPSIS [None]
  - SERRATIA INFECTION [None]
